FAERS Safety Report 16217991 (Version 1)
Quarter: 2019Q2

REPORT INFORMATION
  Report Type: Spontaneous
  Country: US (occurrence: US)
  Receive Date: 20190419
  Receipt Date: 20190419
  Transmission Date: 20190711
  Serious: Yes (Death, Hospitalization)
  Sender: FDA-Public Use
  Company Number: US-JNJFOC-20190422316

PATIENT
  Sex: Female

DRUGS (1)
  1. XARELTO [Suspect]
     Active Substance: RIVAROXABAN
     Indication: DEEP VEIN THROMBOSIS
     Route: 048
     Dates: start: 20170424, end: 2018

REACTIONS (4)
  - Gastrointestinal haemorrhage [Fatal]
  - Rectal haemorrhage [Unknown]
  - Shock haemorrhagic [Fatal]
  - Deep vein thrombosis [Unknown]

NARRATIVE: CASE EVENT DATE: 2018
